FAERS Safety Report 12538846 (Version 3)
Quarter: 2016Q3

REPORT INFORMATION
  Report Type: Report from Study
  Country: US (occurrence: US)
  Receive Date: 20160708
  Receipt Date: 20160725
  Transmission Date: 20161109
  Serious: Yes (Other)
  Sender: FDA-Public Use
  Company Number: US-UCBSA-2016008569

PATIENT
  Sex: Female

DRUGS (2)
  1. LEVETIRACETAM. [Suspect]
     Active Substance: LEVETIRACETAM
     Indication: PRODUCT USED FOR UNKNOWN INDICATION
     Dosage: UNK
  2. VIMPAT [Suspect]
     Active Substance: LACOSAMIDE
     Indication: PRODUCT USED FOR UNKNOWN INDICATION
     Dosage: 50 MG, UNK

REACTIONS (12)
  - Thrombosis [Unknown]
  - Gastric disorder [Unknown]
  - Pulmonary embolism [Unknown]
  - Amnesia [Unknown]
  - Mycobacterium avium complex infection [Unknown]
  - Confusional state [Unknown]
  - Emotional disorder [Unknown]
  - Suicidal ideation [Unknown]
  - Headache [Unknown]
  - Anger [Unknown]
  - Generalised tonic-clonic seizure [Unknown]
  - Seizure [Unknown]
